FAERS Safety Report 11515765 (Version 1)
Quarter: 2015Q3

REPORT INFORMATION
  Report Type: Spontaneous
  Country: US (occurrence: None)
  Receive Date: 20150916
  Receipt Date: 20150916
  Transmission Date: 20151125
  Serious: No
  Sender: FDA-Public Use
  Company Number: US-MDT-ADR-2015-01794

PATIENT
  Age: 54 Year
  Sex: Male

DRUGS (1)
  1. BACLOFEN INTRATHECAL 2000 MCG/ML [Suspect]
     Active Substance: BACLOFEN
     Indication: MUSCLE SPASTICITY
     Dosage: 866.7 MCG/DAY

REACTIONS (3)
  - Drug effect decreased [None]
  - Muscle spasticity [None]
  - Pain [None]
